FAERS Safety Report 5422232-6 (Version None)
Quarter: 2007Q3

REPORT INFORMATION
  Report Type: 
  Country: None (occurrence: None)
  Receive Date: 20070820
  Receipt Date: 20070820
  Transmission Date: 20080115
  Serious: No
  Sender: FDA-Public Use
  Company Number: None

PATIENT
  Sex: Female
  Weight: 61.2356 kg

DRUGS (1)
  1. OCTREOTIDE ACETATE [Suspect]
     Indication: DIAGNOSTIC PROCEDURE
     Dosage: 1 TIME INTRA-ARTER
     Route: 013
     Dates: start: 20050901, end: 20050901

REACTIONS (4)
  - BACK PAIN [None]
  - MASS [None]
  - NO THERAPEUTIC RESPONSE [None]
  - RHEUMATOID ARTHRITIS [None]
